FAERS Safety Report 18362344 (Version 4)
Quarter: 2020Q4

REPORT INFORMATION
  Report Type: Spontaneous
  Country: IT (occurrence: IT)
  Receive Date: 20201008
  Receipt Date: 20201209
  Transmission Date: 20210114
  Serious: Yes (Life-Threatening, Hospitalization, Other)
  Sender: FDA-Public Use
  Company Number: NVSC2020IT270596

PATIENT
  Age: 60 Year
  Sex: Female

DRUGS (19)
  1. ATORVASTATIN [Concomitant]
     Active Substance: ATORVASTATIN
     Indication: PRODUCT USED FOR UNKNOWN INDICATION
     Dosage: 80 MILLIGRAM, QD
     Route: 065
  2. EVEROLIMUS. [Suspect]
     Active Substance: EVEROLIMUS
     Indication: ACUTE MYOCARDIAL INFARCTION
  3. TIROFIBAN [Suspect]
     Active Substance: TIROFIBAN
     Indication: ANTIPLATELET THERAPY
     Dosage: 0.1 UG/KG 1 MIN
     Route: 042
  4. CANGRELOR TETRASODIUM. [Suspect]
     Active Substance: CANGRELOR TETRASODIUM
     Indication: ANTIPLATELET THERAPY
     Dosage: 30 MICROGRAM/KILOGRAM
     Route: 040
  5. FENTANYL. [Interacting]
     Active Substance: FENTANYL
     Indication: PRODUCT USED FOR UNKNOWN INDICATION
     Dosage: 0.1 MILLIGRAM
     Route: 065
  6. TICAGRELOR. [Interacting]
     Active Substance: TICAGRELOR
     Indication: ACUTE CORONARY SYNDROME
     Dosage: 180 MILLIGRAM (LOADING DOSE OF TICAGRELOR WAS ADMINISTRATED AT THE END OF THE PROCEDURE)
     Route: 065
  7. TICAGRELOR. [Interacting]
     Active Substance: TICAGRELOR
     Indication: ANTIPLATELET THERAPY
     Dosage: 90 MILLIGRAM
     Route: 065
  8. TIROFIBAN [Suspect]
     Active Substance: TIROFIBAN
     Dosage: 0.1 MICROGRAM/KILOGRAM, QMINUTE
     Route: 040
  9. RAMIPRIL. [Concomitant]
     Active Substance: RAMIPRIL
     Indication: PRODUCT USED FOR UNKNOWN INDICATION
     Dosage: 5 MILLIGRAM, QD
     Route: 065
  10. BISOPROLOL [Concomitant]
     Active Substance: BISOPROLOL
     Indication: PRODUCT USED FOR UNKNOWN INDICATION
     Dosage: 2.5 MILLIGRAM, QD
     Route: 065
  11. MORPHINE [Interacting]
     Active Substance: MORPHINE
     Indication: ANTIPLATELET THERAPY
     Dosage: 3 MILLIGRAM
     Route: 042
  12. TIROFIBAN [Suspect]
     Active Substance: TIROFIBAN
     Dosage: 0.4 ?G/KG, 1 MIN
     Route: 042
  13. WARFARIN [Suspect]
     Active Substance: WARFARIN
     Indication: ANTIPLATELET THERAPY
     Dosage: 30 ?G/KG
     Route: 040
  14. CANGRELOR TETRASODIUM. [Suspect]
     Active Substance: CANGRELOR TETRASODIUM
     Dosage: 4 MICROGRAM/KILOGRAM, QMINUTE
     Route: 040
  15. ACETYLSALICYLIC ACID [Interacting]
     Active Substance: ASPIRIN
     Dosage: 100 MG, QD
     Route: 048
  16. EVEROLIMUS. [Suspect]
     Active Substance: EVEROLIMUS
     Indication: ACUTE CORONARY SYNDROME
     Dosage: UNK
     Route: 065
  17. HEPARIN [Suspect]
     Active Substance: HEPARIN SODIUM
     Indication: PRODUCT USED FOR UNKNOWN INDICATION
     Dosage: UNK
     Route: 065
  18. ACETYLSALICYLIC ACID [Interacting]
     Active Substance: ASPIRIN
     Indication: ANTIPLATELET THERAPY
     Dosage: 250 MG
     Route: 042
  19. TIROFIBAN [Suspect]
     Active Substance: TIROFIBAN
     Dosage: 0.4 MICROGRAM/KILOGRAM, QMINUTE
     Route: 040

REACTIONS (17)
  - Acute myocardial infarction [Unknown]
  - Drug level decreased [Unknown]
  - Thrombocytopenia [Unknown]
  - Drug interaction [Unknown]
  - Hypotension [Unknown]
  - Labelled drug-drug interaction medication error [Unknown]
  - Vascular stent thrombosis [Unknown]
  - Eosinophil cationic protein increased [Unknown]
  - Nausea [Unknown]
  - Rectal haemorrhage [Unknown]
  - Eosinophilia [Unknown]
  - Hypersensitivity [Unknown]
  - Electrocardiogram ST segment elevation [Unknown]
  - Erythema [Unknown]
  - Colitis ischaemic [Unknown]
  - Off label use [Unknown]
  - Product use in unapproved indication [Unknown]
